FAERS Safety Report 5607797-3 (Version None)
Quarter: 2008Q1

REPORT INFORMATION
  Report Type: 
  Country: None (occurrence: None)
  Receive Date: 20080130
  Receipt Date: 20080116
  Transmission Date: 20080703
  Serious: Yes (Other)
  Sender: FDA-Public Use
  Company Number: US-AMGEN-US261099

PATIENT
  Sex: Female

DRUGS (5)
  1. ENBREL [Suspect]
     Indication: PSORIASIS
     Route: 058
     Dates: start: 20060502
  2. IBUPROFEN [Concomitant]
     Dates: start: 20071218, end: 20080107
  3. LORTAB [Concomitant]
  4. DARVOCET-N 100 [Concomitant]
  5. MUSCLE RELAXANTS [Concomitant]

REACTIONS (7)
  - DRUG INEFFECTIVE [None]
  - INTRA-ABDOMINAL HAEMORRHAGE [None]
  - MIGRAINE [None]
  - MUSCLE SPASMS [None]
  - PYREXIA [None]
  - RASH PRURITIC [None]
  - RECTAL HAEMORRHAGE [None]
